FAERS Safety Report 21842218 (Version 1)
Quarter: 2023Q1

REPORT INFORMATION
  Report Type: Spontaneous
  Country: US (occurrence: US)
  Receive Date: 20230110
  Receipt Date: 20230110
  Transmission Date: 20230418
  Serious: Yes (Other)
  Sender: FDA-Public Use
  Company Number: US-STRIDES ARCOLAB LIMITED-2022SP002866

PATIENT
  Age: 52 Year
  Sex: Female

DRUGS (1)
  1. METHOTREXATE [Suspect]
     Active Substance: METHOTREXATE
     Indication: Parapsoriasis
     Dosage: UNK, MAXIMUM WEEKLY DOSE OF 12.5MG
     Route: 048

REACTIONS (3)
  - Drug ineffective for unapproved indication [Unknown]
  - Nausea [Unknown]
  - Vomiting [Unknown]
